FAERS Safety Report 5643067-5 (Version None)
Quarter: 2008Q1

REPORT INFORMATION
  Report Type: 
  Country: None (occurrence: None)
  Receive Date: 20080228
  Receipt Date: 20080220
  Transmission Date: 20080703
  Serious: Yes (Hospitalization, Other)
  Sender: FDA-Public Use
  Company Number: US-MERCK-0708USA03535

PATIENT
  Age: 74 Year
  Sex: Female

DRUGS (1)
  1. FOSAMAX [Suspect]
     Indication: OSTEOPENIA
     Route: 048
     Dates: start: 20040317, end: 20060201

REACTIONS (6)
  - DIVERTICULITIS [None]
  - DIVERTICULUM [None]
  - OSTEONECROSIS [None]
  - SPONDYLOLISTHESIS [None]
  - TONGUE ULCERATION [None]
  - TRIGGER FINGER [None]
